FAERS Safety Report 8241949 (Version 2)
Quarter: 2014Q1

REPORT INFORMATION
  Report Type: Report from Study
  Country: US (occurrence: US)
  Receive Date: 20111111
  Receipt Date: 20140106
  Transmission Date: 20141002
  Serious: Yes (Other)
  Sender: FDA-Public Use
  Company Number: PHEH2011US008859

PATIENT
  Age: 53 Year
  Sex: Female

DRUGS (11)
  1. GILENYA [Suspect]
     Indication: MULTIPLE SCLEROSIS
     Dosage: 0.5 MG, QD
     Route: 048
     Dates: start: 201106
  2. FLOVENT [Concomitant]
  3. NUVIGIL [Concomitant]
     Dosage: 150 MG, UNK
  4. LOSARTAN POTASSIUM [Concomitant]
     Dosage: 50 MG, UNK
  5. SINGULAIR [Concomitant]
     Dosage: 5 MG, UNK
  6. OMEGA 3 [Concomitant]
     Dosage: 340 MG, UNK
  7. SUPER B COMPLEX                    /01995301/ [Concomitant]
  8. SYNTHROID [Concomitant]
     Dosage: 112 UG, UNK
  9. PROZAC [Concomitant]
     Dosage: 20 MG, UNK
  10. ZOCOR [Concomitant]
     Dosage: 40 MG, UNK
  11. SPIRIVA [Concomitant]

REACTIONS (13)
  - Loss of consciousness [Unknown]
  - Tooth fracture [Unknown]
  - Face injury [Unknown]
  - Balance disorder [Unknown]
  - Incoherent [Unknown]
  - Eye movement disorder [Unknown]
  - Arthralgia [Unknown]
  - Amnesia [Unknown]
  - Syncope [Unknown]
  - Fall [Unknown]
  - Vomiting [Unknown]
  - Asthenia [Unknown]
  - Sinusitis [Unknown]
